FAERS Safety Report 24816183 (Version 6)
Quarter: 2025Q3

REPORT INFORMATION
  Report Type: Report from Study
  Country: CA (occurrence: CA)
  Receive Date: 20250107
  Receipt Date: 20250809
  Transmission Date: 20251020
  Serious: Yes (Hospitalization, Other)
  Sender: ALEXION PHARMACEUTICALS
  Company Number: CA-AstraZeneca-CH-00778222A

PATIENT
  Sex: Male

DRUGS (3)
  1. OSIMERTINIB [Suspect]
     Active Substance: OSIMERTINIB
     Indication: Non-small cell lung cancer metastatic
     Dosage: 80 MILLIGRAM, QD
     Dates: start: 20241210
  2. OSIMERTINIB [Suspect]
     Active Substance: OSIMERTINIB
     Dosage: 80 MILLIGRAM, QD
     Dates: start: 20241210
  3. OSIMERTINIB [Suspect]
     Active Substance: OSIMERTINIB

REACTIONS (6)
  - Full blood count decreased [Unknown]
  - Metastases to central nervous system [Unknown]
  - General physical health deterioration [Unknown]
  - Asthenia [Unknown]
  - Dysuria [Unknown]
  - Urinary tract infection [Unknown]
